FAERS Safety Report 13677289 (Version 1)
Quarter: 2017Q2

REPORT INFORMATION
  Report Type: Spontaneous
  Country: US (occurrence: US)
  Receive Date: 20170621
  Receipt Date: 20170621
  Transmission Date: 20170830
  Serious: Yes (Disabling)
  Sender: FDA-Public Use
  Company Number: None

PATIENT
  Age: 64 Year
  Sex: Female
  Weight: 69.75 kg

DRUGS (5)
  1. PROZAC [Concomitant]
     Active Substance: FLUOXETINE HYDROCHLORIDE
  2. COCHLEAR IMPLANT [Concomitant]
  3. KLONOPIN [Suspect]
     Active Substance: CLONAZEPAM
     Indication: SLEEP DISORDER
     Dosage: ?          QUANTITY:3 TABLET(S);?
     Route: 048
  4. BENADRYL [Concomitant]
     Active Substance: DIPHENHYDRAMINE HYDROCHLORIDE
  5. MAGNESIUM [Concomitant]
     Active Substance: MAGNESIUM

REACTIONS (25)
  - Disturbance in attention [None]
  - Cognitive disorder [None]
  - Withdrawal syndrome [None]
  - Temperature intolerance [None]
  - Musculoskeletal stiffness [None]
  - Dizziness [None]
  - Orthostatic hypotension [None]
  - Paranoia [None]
  - Tinnitus [None]
  - Tachycardia [None]
  - Panic attack [None]
  - Disorientation [None]
  - Feeling jittery [None]
  - Respiratory disorder [None]
  - Vision blurred [None]
  - Fatigue [None]
  - Derealisation [None]
  - Insomnia [None]
  - Hypoacusis [None]
  - Myalgia [None]
  - Depersonalisation/derealisation disorder [None]
  - Feeling abnormal [None]
  - Stress [None]
  - Palpitations [None]
  - Confusional state [None]

NARRATIVE: CASE EVENT DATE: 20141023
